FAERS Safety Report 24460030 (Version 1)
Quarter: 2024Q4

REPORT INFORMATION
  Report Type: Spontaneous
  Country: CN (occurrence: CN)
  Receive Date: 20241018
  Receipt Date: 20241018
  Transmission Date: 20250114
  Serious: No
  Sender: ROCHE
  Company Number: CN-ROCHE-3534727

PATIENT
  Age: 26 Year
  Sex: Male
  Weight: 85.0 kg

DRUGS (1)
  1. MABTHERA [Suspect]
     Active Substance: RITUXIMAB
     Indication: Glomerulonephritis membranous
     Dosage: FORM OF ADMIN TEXT : PUMP INJECTION, INJECTION
     Route: 041
     Dates: start: 20240313, end: 20240314

REACTIONS (7)
  - Pruritus [Recovered/Resolved]
  - Chest discomfort [Recovering/Resolving]
  - Tachypnoea [Recovering/Resolving]
  - Heart rate increased [Recovering/Resolving]
  - Pharyngeal swelling [Recovering/Resolving]
  - Mass [Recovered/Resolved]
  - Off label use [Unknown]

NARRATIVE: CASE EVENT DATE: 20240313
